FAERS Safety Report 9626391 (Version 1)
Quarter: 2013Q4

REPORT INFORMATION
  Report Type: Spontaneous
  Country: US (occurrence: US)
  Receive Date: 20131016
  Receipt Date: 20131016
  Transmission Date: 20140711
  Serious: No
  Sender: FDA-Public Use
  Company Number: US-BAYER-2013-124564

PATIENT
  Age: 85 Year
  Sex: Female
  Weight: 38.55 kg

DRUGS (6)
  1. ALEVE CAPLET [Suspect]
     Indication: BACK PAIN
     Dosage: 1 DF, PRN
     Route: 048
  2. ECOTRIN [Concomitant]
  3. PRILOSEC [Concomitant]
  4. VITAMIN D [Concomitant]
  5. PHILLIPS^ MILK OF MAGNESIA [Concomitant]
     Indication: LAXATIVE SUPPORTIVE CARE
     Dosage: 2 TBSP, PRN
  6. VALIUM [Concomitant]

REACTIONS (3)
  - Throat irritation [Recovered/Resolved]
  - Dysgeusia [Recovered/Resolved]
  - Dyspepsia [Recovered/Resolved]
